FAERS Safety Report 5214941-9 (Version None)
Quarter: 2007Q1

REPORT INFORMATION
  Report Type: 
  Country: None (occurrence: None)
  Receive Date: 20070119
  Receipt Date: 20070119
  Transmission Date: 20070707
  Serious: Yes (Hospitalization)
  Sender: FDA-Public Use
  Company Number: None

PATIENT
  Sex: Female
  Weight: 68 kg

DRUGS (3)
  1. CETUXIMAB [Suspect]
     Indication: PANCREATIC CARCINOMA
     Dosage: IV
     Route: 042
     Dates: start: 20070109
  2. GEMCITABINE [Suspect]
     Dosage: IV
     Route: 042
     Dates: start: 20070109
  3. OXALIPLATIN [Suspect]
     Dosage: IV
     Route: 042
     Dates: start: 20070109

REACTIONS (1)
  - BLOOD CREATININE INCREASED [None]
